FAERS Safety Report 18239054 (Version 1)
Quarter: 2020Q3

REPORT INFORMATION
  Report Type: Spontaneous
  Country: DE (occurrence: DE)
  Receive Date: 20200907
  Receipt Date: 20200907
  Transmission Date: 20201103
  Serious: Yes (Congenital Anomaly, Other)
  Sender: FDA-Public Use
  Company Number: DE-DEXPHARM-20200787

PATIENT
  Age: 1 Day
  Sex: Female
  Weight: 2.72 kg

DRUGS (2)
  1. SEROQUEL [Interacting]
     Active Substance: QUETIAPINE FUMARATE
     Indication: BORDERLINE PERSONALITY DISORDER
     Dosage: 100 [MG/D]
     Route: 064
  2. VENLAFAXINE [Suspect]
     Active Substance: VENLAFAXINE HYDROCHLORIDE
     Indication: DEPRESSION
     Dosage: 150 [MG/D]
     Route: 064
     Dates: start: 20190513, end: 20200221

REACTIONS (2)
  - Foetal exposure during pregnancy [Unknown]
  - Drug interaction [Unknown]
